FAERS Safety Report 7068000-3 (Version None)
Quarter: 2010Q4

REPORT INFORMATION
  Report Type: 
  Country: None (occurrence: None)
  Receive Date: 20101027
  Receipt Date: 20101027
  Transmission Date: 20110411
  Serious: Yes (Other)
  Sender: FDA-Public Use
  Company Number: None

PATIENT
  Age: 15 Year
  Sex: Female
  Weight: 54.4316 kg

DRUGS (2)
  1. FOCALIN XR [Suspect]
     Indication: ANXIETY
     Dosage: XR20 ONE PER AM PO
     Route: 048
     Dates: start: 20100903, end: 20101008
  2. FOCALIN XR [Suspect]
     Indication: ATTENTION DEFICIT/HYPERACTIVITY DISORDER
     Dosage: XR20 ONE PER AM PO
     Route: 048
     Dates: start: 20100903, end: 20101008

REACTIONS (3)
  - ABNORMAL BEHAVIOUR [None]
  - AFFECTIVE DISORDER [None]
  - SOCIAL AVOIDANT BEHAVIOUR [None]
